FAERS Safety Report 10088041 (Version 1)
Quarter: 2014Q2

REPORT INFORMATION
  Report Type: Spontaneous
  Country: US (occurrence: US)
  Receive Date: 20140420
  Receipt Date: 20140420
  Transmission Date: 20141212
  Serious: No
  Sender: FDA-Public Use
  Company Number: US-009507513-1404USA010510

PATIENT
  Sex: Female

DRUGS (1)
  1. NASONEX [Suspect]
     Dosage: 50 MCG, 2 SPRAYS IN EACH NOSTRIL ONCE DAILY
     Route: 045
     Dates: start: 20140416

REACTIONS (1)
  - Drug ineffective [Unknown]
